FAERS Safety Report 17913465 (Version 1)
Quarter: 2020Q2

REPORT INFORMATION
  Report Type: Spontaneous
  Country: US (occurrence: US)
  Receive Date: 20200618
  Receipt Date: 20200618
  Transmission Date: 20200714
  Serious: No
  Sender: FDA-Public Use
  Company Number: US-THERAPEUTICSMD-2020TMD02227

PATIENT
  Sex: Female
  Weight: 66.67 kg

DRUGS (10)
  1. WELLBUTRIN [Concomitant]
     Active Substance: BUPROPION HYDROCHLORIDE
     Dosage: UNK MG
  2. MOVANTIK [Concomitant]
     Active Substance: NALOXEGOL OXALATE
  3. METOPROLOL. [Concomitant]
     Active Substance: METOPROLOL
  4. DUEXIS [Concomitant]
     Active Substance: FAMOTIDINE\IBUPROFEN
  5. HQ-TRE-FLU [Concomitant]
  6. TRIAMTERENE AND HYDROCHLOROTHIAZIDE [Concomitant]
     Active Substance: HYDROCHLOROTHIAZIDE\TRIAMTERENE
     Dosage: UNK
  7. VICODIN [Concomitant]
     Active Substance: ACETAMINOPHEN\HYDROCODONE BITARTRATE
     Dosage: 1/2 - 1 TABLETS TWICE TO THREE TIMES A DAY. NO MORE THAN 4 PER DAY
  8. IMVEXXY [Suspect]
     Active Substance: ESTRADIOL
     Indication: ATROPHIC VULVOVAGINITIS
     Dosage: 10 ?G, 2X/WEEK (ON MONDAY AND THURSDAY) MID-DAY WHILE UPRIGHT AND ACTIVE
     Route: 067
     Dates: start: 2020
  9. SYMBICORT [Concomitant]
     Active Substance: BUDESONIDE\FORMOTEROL FUMARATE DIHYDRATE
  10. MULTIPLE UNSPECIFIED VITAMINS [Concomitant]

REACTIONS (6)
  - Hot flush [Not Recovered/Not Resolved]
  - Feeling cold [Not Recovered/Not Resolved]
  - Product substitution issue [Not Recovered/Not Resolved]
  - Weight increased [Not Recovered/Not Resolved]
  - Peripheral swelling [Not Recovered/Not Resolved]
  - Off label use [Not Recovered/Not Resolved]

NARRATIVE: CASE EVENT DATE: 2020
